FAERS Safety Report 20794212 (Version 1)
Quarter: 2022Q2

REPORT INFORMATION
  Report Type: Spontaneous
  Country: US (occurrence: US)
  Receive Date: 20220506
  Receipt Date: 20220506
  Transmission Date: 20220720
  Serious: No
  Sender: FDA-Public Use
  Company Number: US-AUROBINDO-AUR-APL-2021-039890

PATIENT
  Age: 85 Year
  Sex: Female

DRUGS (1)
  1. DEXTROMETHORPHAN HYDROBROMIDE AND GUAIFENESIN [Suspect]
     Active Substance: DEXTROMETHORPHAN HYDROBROMIDE\GUAIFENESIN
     Indication: Nasal congestion
     Dosage: UNK
     Route: 065

REACTIONS (5)
  - Cough [Unknown]
  - Feeling hot [Unknown]
  - Feeling abnormal [Unknown]
  - Insomnia [Unknown]
  - Product substitution issue [Unknown]
